FAERS Safety Report 8000322 (Version 2)
Quarter: 2014Q4

REPORT INFORMATION
  Report Type: Report from Study
  Country: US (occurrence: US)
  Receive Date: 20110621
  Receipt Date: 20141111
  Transmission Date: 20150529
  Serious: Yes (Hospitalization)
  Sender: FDA-Public Use
  Company Number: US-ASTRAZENECA-2010SE34373

PATIENT
  Sex: Female
  Weight: 54.4 kg

DRUGS (9)
  1. ATACAND [Suspect]
     Active Substance: CANDESARTAN CILEXETIL
     Route: 048
     Dates: start: 2000, end: 20141027
  2. CENTRUM SILVER [Concomitant]
     Active Substance: VITAMINS
  3. LEVOTHYROXINE [Concomitant]
     Active Substance: LEVOTHYROXINE
     Indication: THYROID DISORDER
  4. FISH OIL [Concomitant]
     Active Substance: FISH OIL
     Indication: BLOOD CHOLESTEROL ABNORMAL
  5. ATACAND [Suspect]
     Active Substance: CANDESARTAN CILEXETIL
     Route: 048
     Dates: start: 20141027
  6. CODINE [Suspect]
     Active Substance: CODEINE
     Route: 065
  7. KEFLEX [Suspect]
     Active Substance: CEPHALEXIN
     Route: 065
  8. PHENERGAN [Suspect]
     Active Substance: PROMETHAZINE HYDROCHLORIDE
     Route: 065
  9. HYDROCHLOROTHIAZIDE. [Concomitant]
     Active Substance: HYDROCHLOROTHIAZIDE
     Indication: DRUG THERAPY

REACTIONS (8)
  - Malaise [Unknown]
  - Pruritus [Unknown]
  - Hypertension [Unknown]
  - Drug dose omission [Unknown]
  - Somnolence [Unknown]
  - Respiratory rate decreased [Unknown]
  - Adverse drug reaction [Unknown]
  - Incorrect drug dosage form administered [Unknown]
